FAERS Safety Report 5919562-8 (Version None)
Quarter: 2008Q4

REPORT INFORMATION
  Report Type: 
  Country: None (occurrence: None)
  Receive Date: 20081015
  Receipt Date: 20080107
  Transmission Date: 20090506
  Serious: No
  Sender: FDA-Public Use
  Company Number: US-BRISTOL-MYERS SQUIBB COMPANY-13986633

PATIENT
  Age: 60 Year
  Sex: Female
  Weight: 68 kg

DRUGS (7)
  1. KENALOG-40 [Suspect]
     Indication: INTERVERTEBRAL DISC PROTRUSION
     Dosage: RECEIVED 2 CC INJECTION
     Dates: start: 20071018
  2. ESTRADIOL [Concomitant]
  3. PROGESTERONE [Concomitant]
  4. DYAZIDE [Concomitant]
  5. LIPITOR [Concomitant]
  6. METOPROLOL TARTRATE [Concomitant]
  7. SERZONE [Concomitant]

REACTIONS (18)
  - BLOOD CORTISOL ABNORMAL [None]
  - BLOOD PRESSURE INCREASED [None]
  - CUSHING'S SYNDROME [None]
  - DYSPHONIA [None]
  - EPISTAXIS [None]
  - FAT REDISTRIBUTION [None]
  - FATIGUE [None]
  - GINGIVAL SWELLING [None]
  - HYPERHIDROSIS [None]
  - INCREASED APPETITE [None]
  - LIP SWELLING [None]
  - MUSCULAR WEAKNESS [None]
  - OESOPHAGEAL CANDIDIASIS [None]
  - ORAL CANDIDIASIS [None]
  - SWELLING FACE [None]
  - VISION BLURRED [None]
  - VULVOVAGINAL CANDIDIASIS [None]
  - WEIGHT INCREASED [None]
